FAERS Safety Report 25755342 (Version 2)
Quarter: 2025Q4

REPORT INFORMATION
  Report Type: Spontaneous
  Country: EU (occurrence: EU)
  Receive Date: 20250903
  Receipt Date: 20251002
  Transmission Date: 20260118
  Serious: Yes (Hospitalization, Other)
  Sender: ROCHE
  Company Number: EU-PFIZER INC-PV202500089982

PATIENT
  Age: 33 Year
  Sex: Male

DRUGS (18)
  1. DIAZEPAM [Suspect]
     Active Substance: DIAZEPAM
     Indication: Exercise tolerance increased
     Dosage: UNK
     Route: 065
  2. DIAZEPAM [Suspect]
     Active Substance: DIAZEPAM
     Indication: Mixed anxiety and depressive disorder
  3. NUTROPIN [Suspect]
     Active Substance: SOMATROPIN
     Indication: Exercise tolerance increased
     Dosage: PERIODICALLY, 4-5 TIMES A WEEK BEFORE EACH TRAINING SESSION
     Route: 065
  4. NUTROPIN [Suspect]
     Active Substance: SOMATROPIN
     Indication: Blood growth hormone
  5. CITALOPRAM [Suspect]
     Active Substance: CITALOPRAM
     Indication: Mixed anxiety and depressive disorder
     Dosage: UNK
     Route: 065
  6. CITALOPRAM [Suspect]
     Active Substance: CITALOPRAM
     Indication: Exercise tolerance increased
  7. CABERGOLINE [Suspect]
     Active Substance: CABERGOLINE
     Indication: Exercise tolerance increased
     Dosage: UNK
     Route: 065
  8. TRAZODONE HYDROCHLORIDE [Suspect]
     Active Substance: TRAZODONE HYDROCHLORIDE
     Indication: Mixed anxiety and depressive disorder
     Dosage: UNK
     Route: 065
  9. TRAZODONE HYDROCHLORIDE [Suspect]
     Active Substance: TRAZODONE HYDROCHLORIDE
     Indication: Exercise tolerance increased
  10. HYDROXYZINE [Suspect]
     Active Substance: HYDROXYZINE HYDROCHLORIDE
     Indication: Mixed anxiety and depressive disorder
     Dosage: UNK
     Route: 065
  11. HYDROXYZINE [Suspect]
     Active Substance: HYDROXYZINE HYDROCHLORIDE
     Indication: Exercise tolerance increased
  12. ALPRAZOLAM [Suspect]
     Active Substance: ALPRAZOLAM
     Indication: Exercise tolerance increased
     Dosage: 0.5 MG, DAILY (/24 H)
     Route: 065
  13. ALPRAZOLAM [Suspect]
     Active Substance: ALPRAZOLAM
     Dosage: 1 MG, DAILY (/24 H)
     Route: 065
  14. TESTOSTERONE [Suspect]
     Active Substance: TESTOSTERONE
     Indication: Exercise tolerance increased
     Dosage: THE WEEKLY DOSE OF TESTOSTERONE PERIODICALLY EXCEEDED 1 G
     Route: 065
  15. NANDROLONE [Suspect]
     Active Substance: NANDROLONE
     Indication: Exercise tolerance increased
     Dosage: UNK
     Route: 065
  16. ANASTROZOLE [Suspect]
     Active Substance: ANASTROZOLE
     Indication: Exercise tolerance increased
     Dosage: UNK
     Route: 065
  17. TELMISARTAN [Suspect]
     Active Substance: TELMISARTAN
     Indication: Product used for unknown indication
     Route: 065
  18. ezetinib [Concomitant]

REACTIONS (16)
  - Chest pain [Unknown]
  - Hypertension [Unknown]
  - Hypoglycaemia [Unknown]
  - Andropause [Unknown]
  - Drug abuse [Unknown]
  - Peptic ulcer [Unknown]
  - Arteriosclerosis coronary artery [Recovering/Resolving]
  - High density lipoprotein decreased [Recovering/Resolving]
  - Blood testosterone increased [Unknown]
  - Blood growth hormone increased [Unknown]
  - Insulin-like growth factor increased [Unknown]
  - Irritable bowel syndrome [Unknown]
  - Off label use [Unknown]
  - Secondary hypogonadism [Recovering/Resolving]
  - Alanine aminotransferase increased [Unknown]
  - Blood triglycerides increased [Unknown]
